FAERS Safety Report 23741253 (Version 1)
Quarter: 2024Q2

REPORT INFORMATION
  Report Type: Spontaneous
  Country: US (occurrence: US)
  Receive Date: 20240415
  Receipt Date: 20240415
  Transmission Date: 20240715
  Serious: No
  Sender: FDA-Public Use
  Company Number: US-SANDOZ-SDZ2024US039165

PATIENT
  Age: 54 Year
  Weight: 48.073 kg

DRUGS (1)
  1. ESTRADIOL [Suspect]
     Active Substance: ESTRADIOL
     Indication: Product used for unknown indication
     Dosage: 0.05 MG (0.05/24 DIS, CHANGED TWICE WEEKLY. TUES AND SATURDAYS)
     Route: 062
     Dates: start: 20240330, end: 20240411

REACTIONS (4)
  - Dermatitis contact [Recovering/Resolving]
  - Pruritus [Recovering/Resolving]
  - Erythema [Recovering/Resolving]
  - Application site urticaria [Recovering/Resolving]

NARRATIVE: CASE EVENT DATE: 20240402
